FAERS Safety Report 6316567-2 (Version None)
Quarter: 2009Q3

REPORT INFORMATION
  Report Type: 
  Country: None (occurrence: None)
  Receive Date: 20090820
  Receipt Date: 20090811
  Transmission Date: 20100115
  Serious: Yes (Other)
  Sender: FDA-Public Use
  Company Number: PHHY2009IT34203

PATIENT
  Sex: Female

DRUGS (2)
  1. ZOMETA [Suspect]
     Indication: MULTIPLE MYELOMA
     Dosage: 4 MG, QMO
     Route: 042
     Dates: start: 20050601, end: 20061031
  2. THALIDOMIDE [Concomitant]
     Dosage: 100 MG
     Dates: start: 20050901, end: 20090805

REACTIONS (2)
  - OSTEOMYELITIS [None]
  - SURGERY [None]
